FAERS Safety Report 5016596-5 (Version None)
Quarter: 2006Q2

REPORT INFORMATION
  Report Type: 
  Country: None (occurrence: None)
  Receive Date: 20060414
  Receipt Date: 20051020
  Transmission Date: 20061013
  Serious: Yes (Hospitalization)
  Sender: FDA-Public Use
  Company Number: 2005-BP-18480BP

PATIENT
  Age: 55 Year
  Sex: Male

DRUGS (2)
  1. FLOMAX [Suspect]
     Indication: BENIGN PROSTATIC HYPERPLASIA
     Dosage: 0.4 MG (0.4 MG, QD), PO
     Route: 048
     Dates: start: 20050901, end: 20051012
  2. BENICAR [Concomitant]

REACTIONS (1)
  - PRIAPISM [None]
